FAERS Safety Report 7016316-9 (Version None)
Quarter: 2010Q3

REPORT INFORMATION
  Report Type: 
  Country: None (occurrence: None)
  Receive Date: 20100927
  Receipt Date: 20100915
  Transmission Date: 20110219
  Serious: Yes (Other)
  Sender: FDA-Public Use
  Company Number: DE-PFIZER INC-2010116537

PATIENT
  Age: 42 Year
  Sex: Female

DRUGS (1)
  1. LYRICA [Suspect]
     Indication: DEPRESSION
     Dosage: 25 MG, 1X/DAY
     Dates: start: 20100801

REACTIONS (1)
  - LYMPHOEDEMA [None]
